FAERS Safety Report 5203246-8 (Version None)
Quarter: 2006Q4

REPORT INFORMATION
  Report Type: 
  Country: None (occurrence: None)
  Receive Date: 20061016
  Receipt Date: 20060405
  Transmission Date: 20070319
  Serious: Yes (Other)
  Sender: FDA-Public Use
  Company Number: 2006031606

PATIENT
  Age: 30 Year
  Sex: Female

DRUGS (4)
  1. NEURONTIN [Suspect]
     Indication: INSOMNIA
     Dosage: 600 MG
     Dates: start: 20001219
  2. NEURONTIN [Suspect]
     Indication: MOOD SWINGS
     Dosage: 600 MG
     Dates: start: 20001219
  3. KLONOPIN [Concomitant]
  4. TRAZODONE HCL [Concomitant]

REACTIONS (2)
  - INSOMNIA [None]
  - SUICIDAL IDEATION [None]
